FAERS Safety Report 19706781 (Version 2)
Quarter: 2022Q4

REPORT INFORMATION
  Report Type: Spontaneous
  Country: DE (occurrence: DE)
  Receive Date: 20210817
  Receipt Date: 20221029
  Transmission Date: 20230113
  Serious: Yes (Hospitalization)
  Sender: FDA-Public Use
  Company Number: DE-ADRED-05851-01

PATIENT
  Age: 45 Year
  Sex: Female
  Weight: 80 kg

DRUGS (10)
  1. ASPIRIN [Suspect]
     Active Substance: ASPIRIN
     Indication: Product used for unknown indication
     Dosage: 100 MILLIGRAM DAILY;  0-1-0-0,
     Route: 048
  2. CLOPIDOGREL [Suspect]
     Active Substance: CLOPIDOGREL BISULFATE
     Indication: Product used for unknown indication
     Dosage: 2 DOSAGE FORMS DAILY; 75 MG, 2-0-0-0
     Route: 048
  3. Humalog 100Einheiten/ml Injektionslosung [Concomitant]
     Indication: Product used for unknown indication
     Dosage: 12 DOSAGE FORMS DAILY; 100 | 1 IU / ML, 6-6-0-0
     Route: 058
  4. ATORVASTATIN [Concomitant]
     Active Substance: ATORVASTATIN
     Indication: Product used for unknown indication
     Dosage: 80 MILLIGRAM DAILY;  0-0-1-0
     Route: 048
  5. METOPROLOL [Concomitant]
     Active Substance: METOPROLOL
     Indication: Product used for unknown indication
     Dosage: 95 MILLIGRAM DAILY; 1-0-1-0
     Route: 048
  6. MOXONIDINE [Concomitant]
     Active Substance: MOXONIDINE
     Indication: Product used for unknown indication
     Dosage: .4 MILLIGRAM DAILY; 1-0-1-0
     Route: 048
  7. VICTOZA [Concomitant]
     Active Substance: LIRAGLUTIDE
     Indication: Product used for unknown indication
     Dosage: 1 DOSAGE FORMS DAILY; 18|3 MG/ML, 1-0-0-0
     Route: 058
  8. Levemir FlexPen 300E. 100E./ml [Concomitant]
     Indication: Product used for unknown indication
     Dosage: 12 DOSAGE FORMS DAILY; 300|3 IE/ML, 0-0-0-12
     Route: 058
  9. Candesartan comp. Aurobindo 16mg/12,5mg [Concomitant]
     Indication: Product used for unknown indication
     Dosage: 2 DOSAGE FORMS DAILY; 16|12.5 MG, 1-0-1-0
     Route: 048
  10. AMLODIPINE BESYLATE [Concomitant]
     Active Substance: AMLODIPINE BESYLATE
     Indication: Product used for unknown indication
     Dosage: 10 MILLIGRAM DAILY; 5 MG, 1-0-1-0
     Route: 048

REACTIONS (4)
  - Cerebrovascular accident [Unknown]
  - Presyncope [Unknown]
  - Malaise [Unknown]
  - Duodenal ulcer haemorrhage [Unknown]
